FAERS Safety Report 6256267-0 (Version None)
Quarter: 2009Q3

REPORT INFORMATION
  Report Type: 
  Country: None (occurrence: None)
  Receive Date: 20090706
  Receipt Date: 20090605
  Transmission Date: 20100115
  Serious: No
  Sender: FDA-Public Use
  Company Number: US-BAYER-200922913NA

PATIENT
  Age: 34 Year
  Sex: Male

DRUGS (1)
  1. LEVITRA [Suspect]
     Indication: PREMATURE EJACULATION
     Dosage: UNIT DOSE: 20 MG
     Route: 048
     Dates: start: 20081201

REACTIONS (1)
  - PREMATURE EJACULATION [None]
